FAERS Safety Report 9182324 (Version 1)
Quarter: 2013Q1

REPORT INFORMATION
  Report Type: Spontaneous
  Country: US (occurrence: None)
  Receive Date: 20130321
  Receipt Date: 20130321
  Transmission Date: 20140127
  Serious: Yes (Disabling, Other)
  Sender: FDA-Public Use
  Company Number: None

PATIENT
  Age: 73 Year
  Sex: Female
  Weight: 68.95 kg

DRUGS (1)
  1. TRENTAL [Suspect]
     Indication: COLITIS ISCHAEMIC
     Dosage: 400MG ER 3 TIMES DAILY ORAL
     Route: 048
     Dates: start: 20121122, end: 20130104

REACTIONS (9)
  - Local swelling [None]
  - Pain in extremity [None]
  - Musculoskeletal stiffness [None]
  - Joint stiffness [None]
  - Swelling face [None]
  - Pain in extremity [None]
  - Local swelling [None]
  - Joint swelling [None]
  - Arthralgia [None]
